FAERS Safety Report 19152442 (Version 1)
Quarter: 2021Q2

REPORT INFORMATION
  Report Type: Spontaneous
  Country: US (occurrence: US)
  Receive Date: 20210416
  Receipt Date: 20210416
  Transmission Date: 20210717
  Serious: Yes (Other)
  Sender: FDA-Public Use
  Company Number: None

PATIENT
  Age: 30 Year
  Sex: Female
  Weight: 56.25 kg

DRUGS (1)
  1. HYDROCODONE?ACETAMINOPHEN 7.5?325 TABLET [Suspect]
     Active Substance: ACETAMINOPHEN\HYDROCODONE BITARTRATE
     Indication: TOOTH EXTRACTION
     Dates: start: 20210414, end: 20210415

REACTIONS (1)
  - Sleep paralysis [None]

NARRATIVE: CASE EVENT DATE: 20210414
